FAERS Safety Report 14073254 (Version 1)
Quarter: 2017Q4

REPORT INFORMATION
  Report Type: Spontaneous
  Country: US (occurrence: US)
  Receive Date: 20171010
  Receipt Date: 20171010
  Transmission Date: 20180321
  Serious: No
  Sender: FDA-Public Use
  Company Number: US-JNJFOC-20170807292

PATIENT
  Age: 67 Year
  Sex: Female

DRUGS (11)
  1. ATORVASTATIN [Concomitant]
     Active Substance: ATORVASTATIN
     Indication: BLOOD CHOLESTEROL INCREASED
     Dosage: DAY
     Route: 048
  2. LUMIGAN [Concomitant]
     Active Substance: BIMATOPROST
     Indication: GLAUCOMA
     Dosage: ONE DROP IN BOTH THE EYES AT NIGHT
     Route: 065
  3. METFORMIN [Concomitant]
     Active Substance: METFORMIN HYDROCHLORIDE
     Indication: DIABETES MELLITUS
     Route: 048
     Dates: start: 201701
  4. TYLENOL EXTRA STRENGTH [Suspect]
     Active Substance: ACETAMINOPHEN
     Indication: PAIN
     Dosage: AT NIGHT
     Route: 048
  5. METOPROLOL TARTRATE. [Concomitant]
     Active Substance: METOPROLOL TARTRATE
     Indication: ATRIAL FIBRILLATION
     Route: 048
     Dates: start: 2010
  6. XELJANZ [Concomitant]
     Active Substance: TOFACITINIB CITRATE
     Indication: RHEUMATOID ARTHRITIS
     Route: 048
     Dates: start: 201706
  7. LOSARTAN. [Concomitant]
     Active Substance: LOSARTAN
     Indication: HYPERTENSION
     Route: 048
     Dates: start: 2012
  8. TEMAZEPAM. [Concomitant]
     Active Substance: TEMAZEPAM
     Indication: INSOMNIA
     Dosage: AS NEEDED AT NIGHT
     Route: 048
  9. DIGOXIN. [Concomitant]
     Active Substance: DIGOXIN
     Indication: ATRIAL FIBRILLATION
     Dosage: DAILY
     Route: 048
     Dates: start: 2000
  10. QUETIAPINE. [Concomitant]
     Active Substance: QUETIAPINE
     Indication: SLEEP DISORDER
     Dosage: AT BEDTIME
     Route: 048
     Dates: start: 201701
  11. WARFARIN [Concomitant]
     Active Substance: WARFARIN
     Indication: HEART VALVE REPLACEMENT
     Route: 048
     Dates: start: 2000

REACTIONS (1)
  - Drug effect incomplete [Unknown]
